FAERS Safety Report 15000212 (Version 1)
Quarter: 2018Q2

REPORT INFORMATION
  Report Type: Report from Study
  Country: CA (occurrence: CA)
  Receive Date: 20180612
  Receipt Date: 20180612
  Transmission Date: 20180711
  Serious: Yes (Hospitalization)
  Sender: FDA-Public Use
  Company Number: CA-GLAXOSMITHKLINE-CA2018GSK103245

PATIENT
  Age: 69 Year
  Sex: Female

DRUGS (2)
  1. VENTOLIN [Suspect]
     Active Substance: ALBUTEROL SULFATE
     Indication: ASTHMA
     Dosage: UNK
  2. MEPOLIZUMAB [Suspect]
     Active Substance: MEPOLIZUMAB
     Indication: ASTHMA
     Dosage: 100 MG, Z, MONTHLY
     Route: 042
     Dates: start: 20170530

REACTIONS (7)
  - Dyspnoea [Unknown]
  - Tremor [Unknown]
  - Asthma [Unknown]
  - Middle insomnia [Unknown]
  - Palpitations [Unknown]
  - Loss of personal independence in daily activities [Unknown]
  - Wheezing [Unknown]

NARRATIVE: CASE EVENT DATE: 201801
